FAERS Safety Report 15673422 (Version 1)
Quarter: 2018Q4

REPORT INFORMATION
  Report Type: Spontaneous
  Country: US (occurrence: US)
  Receive Date: 20181129
  Receipt Date: 20181129
  Transmission Date: 20190205
  Serious: No
  Sender: FDA-Public Use
  Company Number: US-AMAG PHARMACEUTICALS, INC.-AMAG201805653

PATIENT
  Age: 46 Year
  Sex: Female
  Weight: 81.63 kg

DRUGS (2)
  1. INTRAROSA [Suspect]
     Active Substance: PRASTERONE
     Indication: VULVOVAGINAL DRYNESS
     Dosage: 6.5 MG, UNK
     Route: 067
     Dates: start: 201808
  2. INTRAROSA [Suspect]
     Active Substance: PRASTERONE
     Indication: MENOPAUSAL SYMPTOMS

REACTIONS (2)
  - Product administration error [Recovered/Resolved]
  - Off label use [Not Recovered/Not Resolved]

NARRATIVE: CASE EVENT DATE: 201808
